FAERS Safety Report 5634634-3 (Version None)
Quarter: 2008Q1

REPORT INFORMATION
  Report Type: 
  Country: None (occurrence: None)
  Receive Date: 20080222
  Receipt Date: 20080208
  Transmission Date: 20080703
  Serious: Yes (Hospitalization)
  Sender: FDA-Public Use
  Company Number: FR-TEVA-167335ISR

PATIENT
  Sex: Male

DRUGS (11)
  1. VINCRISTINE SULFATE [Suspect]
     Indication: ACUTE LEUKAEMIA
     Route: 042
     Dates: start: 20070606, end: 20070627
  2. PREDNISOLONE SODIUM SULFOBENZOATE [Suspect]
     Dates: start: 20070530, end: 20070605
  3. DEXAMETHASONE TAB [Suspect]
     Dates: start: 20070606, end: 20070901
  4. METHYLPREDNISOLONE ACETATE [Suspect]
     Dates: start: 20070606, end: 20070731
  5. DAUNORUBICIN HCL [Suspect]
     Indication: ACUTE LEUKAEMIA
     Route: 042
     Dates: start: 20070614, end: 20070803
  6. METHOTREXATE [Suspect]
     Dates: start: 20070606, end: 20070901
  7. CYTARABINE [Suspect]
     Dates: start: 20070607, end: 20070901
  8. ASPARAGINASE [Suspect]
     Route: 042
     Dates: start: 20070612, end: 20070921
  9. ONDANSETRON HYDROCHLORIDE [Concomitant]
  10. BACTRIM [Concomitant]
     Route: 048
  11. HYDROXYZINE [Concomitant]
     Route: 048
     Dates: start: 20070701, end: 20070801

REACTIONS (2)
  - DELIRIUM [None]
  - DYSTHYMIC DISORDER [None]
